FAERS Safety Report 5025118-4 (Version None)
Quarter: 2006Q2

REPORT INFORMATION
  Report Type: 
  Country: None (occurrence: None)
  Receive Date: 20060607
  Receipt Date: 20060525
  Transmission Date: 20061013
  Serious: Yes (Hospitalization, Other)
  Sender: FDA-Public Use
  Company Number: 163-20785-06050835

PATIENT
  Age: 53 Year
  Sex: Male

DRUGS (10)
  1. THALOMID [Suspect]
     Indication: MULTIPLE MYELOMA
     Dosage: 200 - 600 MG, QD, ORAL
     Route: 048
     Dates: start: 20020726, end: 20040101
  2. DEXAMETHASONE [Suspect]
     Indication: MULTIPLE MYELOMA
  3. ZOMETA [Suspect]
     Indication: MULTIPLE MYELOMA
  4. VELCADE [Suspect]
     Indication: MULTIPLE MYELOMA
  5. OXYCONTIN [Concomitant]
  6. NEURONTIN [Concomitant]
  7. LASIX [Concomitant]
  8. PREVACID (LANDSOPRAZOLE) [Concomitant]
  9. ALDACTONE [Concomitant]
  10. ALLOPURINOL [Concomitant]

REACTIONS (8)
  - CARDIOMYOPATHY [None]
  - CONDITION AGGRAVATED [None]
  - DERMAL CYST [None]
  - HIP SURGERY [None]
  - MUSCULOSKELETAL CHEST PAIN [None]
  - NEUROPATHY [None]
  - OSTEONECROSIS [None]
  - PANCYTOPENIA [None]
